FAERS Safety Report 8619941-4 (Version None)
Quarter: 2012Q3

REPORT INFORMATION
  Report Type: 
  Country: None (occurrence: None)
  Receive Date: 20120824
  Receipt Date: 20120727
  Transmission Date: 20120928
  Serious: Yes (Hospitalization, Other)
  Sender: FDA-Public Use
  Company Number: JP-009507513-2012SP029625

PATIENT

DRUGS (20)
  1. REBETOL [Suspect]
     Indication: HEPATITIS C
     Dosage: 600 MG, QD
     Route: 048
     Dates: start: 20120319, end: 20120429
  2. DIOVAN [Concomitant]
     Route: 048
  3. NIZATIDINE [Concomitant]
     Indication: HYPERTENSION
     Dosage: FORMULATION:POR
     Route: 048
  4. NIZATIDINE [Concomitant]
     Route: 048
  5. LOXONIN [Concomitant]
     Indication: PRODUCT USED FOR UNKNOWN INDICATION
     Dosage: 60 MG, QD
     Route: 048
     Dates: start: 20120423
  6. PEG-INTRON [Suspect]
     Indication: HEPATITIS C
     Dosage: 1.5MCG/KG/WEEK
     Route: 058
     Dates: start: 20120319, end: 20120514
  7. REBETOL [Suspect]
     Dosage: 400 MG, QD
     Route: 048
     Dates: start: 20120430
  8. TELAVIC [Suspect]
     Indication: HEPATITIS C
     Route: 048
     Dates: start: 20120319, end: 20120514
  9. DIOVAN [Concomitant]
     Indication: HYPERTENSION
     Dosage: FORMULATION:POR
     Route: 048
  10. PRIMPERAN TAB [Concomitant]
     Indication: PRODUCT USED FOR UNKNOWN INDICATION
     Dosage: 5 MG, QD
     Route: 048
     Dates: start: 20120416
  11. REBETOL [Suspect]
     Dosage: DOSAGE IS UNCERTAIN DURING A DAY.
     Route: 048
     Dates: start: 20120524
  12. DICLOFENAC SODIUM [Concomitant]
     Indication: PYREXIA
     Dosage: 25 MG, PRN
     Route: 054
     Dates: start: 20120320
  13. ALLOPURINOL [Concomitant]
     Indication: HYPERURICAEMIA
     Dosage: 100 MG, QD
     Route: 048
     Dates: start: 20120416, end: 20120422
  14. PEG-INTRON [Suspect]
     Dosage: DOSAGE IS UNCERTAIN DURING A DAY.
     Route: 058
     Dates: start: 20120524
  15. ANTIVIRAL (UNSPECIFIED) [Suspect]
     Indication: HEPATITIS C
     Dosage: 2250 MG, QD
     Route: 048
     Dates: start: 20120319, end: 20120514
  16. URSO 250 [Concomitant]
     Indication: HEPATITIS C
     Dosage: FORMULATION:POR
     Route: 048
  17. NORVASC [Concomitant]
     Indication: HYPERTENSION
     Dosage: FORMULATION:POR
     Route: 048
  18. REBETOL [Suspect]
     Dosage: 200 MG, QD
     Route: 048
     Dates: start: 20120508, end: 20120514
  19. URSO 250 [Concomitant]
     Route: 048
  20. NORVASC [Concomitant]
     Route: 048

REACTIONS (1)
  - STEVENS-JOHNSON SYNDROME [None]
